FAERS Safety Report 7874911-9 (Version None)
Quarter: 2011Q4

REPORT INFORMATION
  Report Type: 
  Country: None (occurrence: None)
  Receive Date: 20111031
  Receipt Date: 20111024
  Transmission Date: 20120403
  Serious: Yes (Hospitalization)
  Sender: FDA-Public Use
  Company Number: FR-JNJFOC-20111010340

PATIENT
  Age: 71 Year
  Sex: Female

DRUGS (4)
  1. LEVOFLOXACIN [Suspect]
     Indication: BRONCHITIS CHRONIC
     Route: 048
     Dates: start: 20101025, end: 20101025
  2. FLECAINIDE ACETATE [Concomitant]
     Indication: PRODUCT USED FOR UNKNOWN INDICATION
     Route: 065
  3. ASPIRIN [Concomitant]
     Indication: PRODUCT USED FOR UNKNOWN INDICATION
     Route: 065
  4. SIMVASTATIN [Concomitant]
     Indication: PRODUCT USED FOR UNKNOWN INDICATION
     Route: 065

REACTIONS (5)
  - TACHYPNOEA [None]
  - ERYTHEMA [None]
  - HYPOTENSION [None]
  - ANAPHYLACTOID REACTION [None]
  - PRURITUS [None]
